FAERS Safety Report 9156339 (Version 2)
Quarter: 2013Q1

REPORT INFORMATION
  Report Type: Spontaneous
  Country: US (occurrence: US)
  Receive Date: 20130312
  Receipt Date: 20130315
  Transmission Date: 20140127
  Serious: No
  Sender: FDA-Public Use
  Company Number: US-009507513-1303USA004494

PATIENT
  Age: 46 Year
  Sex: Female

DRUGS (1)
  1. PEGINTRON [Suspect]
     Dosage: 150 MICROGRAM, UNK
     Route: 058
     Dates: start: 20130228

REACTIONS (4)
  - Accidental exposure to product [Unknown]
  - Product quality issue [Unknown]
  - No adverse event [Unknown]
  - Wrong technique in drug usage process [Unknown]
